FAERS Safety Report 17019895 (Version 1)
Quarter: 2019Q4

REPORT INFORMATION
  Report Type: Spontaneous
  Country: GB (occurrence: GB)
  Receive Date: 20191112
  Receipt Date: 20191112
  Transmission Date: 20200122
  Serious: No
  Sender: FDA-Public Use
  Company Number: GB-ALKEM LABORATORIES LIMITED-GB-ALKEM-2019-07533

PATIENT
  Age: 51 Year
  Sex: Female

DRUGS (1)
  1. PREGABALIN. [Suspect]
     Active Substance: PREGABALIN
     Indication: PRODUCT USED FOR UNKNOWN INDICATION
     Dosage: 900 MILLIGRAM, QD
     Route: 065

REACTIONS (8)
  - Ataxia [Unknown]
  - Sensory disturbance [Unknown]
  - Palpitations [Unknown]
  - Blood pressure increased [Unknown]
  - Diplopia [Unknown]
  - Product prescribing error [Unknown]
  - Paraesthesia [Unknown]
  - Dizziness [Unknown]

NARRATIVE: CASE EVENT DATE: 20160502
